FAERS Safety Report 23780101 (Version 6)
Quarter: 2025Q4

REPORT INFORMATION
  Report Type: Spontaneous
  Country: US (occurrence: US)
  Receive Date: 20240424
  Receipt Date: 20251117
  Transmission Date: 20260117
  Serious: Yes (Other)
  Sender: SANOFI AVENTIS
  Company Number: US-SA-2024SA017539

PATIENT
  Age: 65 Year
  Sex: Female
  Weight: 62.73 kg

DRUGS (2)
  1. DUPIXENT [Suspect]
     Active Substance: DUPILUMAB
     Indication: Nasal polyps
     Dosage: 300 MG, QOW
     Route: 058
  2. DUPIXENT [Suspect]
     Active Substance: DUPILUMAB
     Indication: Asthma
     Dosage: UNK

REACTIONS (6)
  - Cataract [Unknown]
  - Ocular discomfort [Recovered/Resolved]
  - Illness [Recovered/Resolved]
  - Intentional dose omission [Unknown]
  - Dry eye [Unknown]
  - Therapeutic product effect incomplete [Unknown]
